FAERS Safety Report 19321630 (Version 9)
Quarter: 2021Q3

REPORT INFORMATION
  Report Type: Spontaneous
  Country: RU (occurrence: RU)
  Receive Date: 20210527
  Receipt Date: 20210913
  Transmission Date: 20211014
  Serious: Yes (Other)
  Sender: FDA-Public Use
  Company Number: RU-BIOGEN-2021BI01012851

PATIENT
  Age: 6 Year
  Sex: Female
  Weight: 14 kg

DRUGS (12)
  1. SPINRAZA [Suspect]
     Active Substance: NUSINERSEN
     Dosage: 4TH ADMINISTRATION
     Route: 065
     Dates: start: 20210720
  2. SEVORAN [Concomitant]
     Active Substance: SEVOFLURANE
     Dosage: 6?8 VOL% WAS USED
     Route: 055
     Dates: start: 20210513, end: 20210513
  3. SEVORAN [Concomitant]
     Active Substance: SEVOFLURANE
     Dosage: 6?8 VOL% WAS USED
     Route: 055
     Dates: start: 20210720, end: 20210720
  4. SPINRAZA [Suspect]
     Active Substance: NUSINERSEN
     Indication: SPINAL MUSCULAR ATROPHY
     Dosage: 1ST ADMINISTRATION
     Route: 065
     Dates: start: 20210429, end: 20210429
  5. SPINRAZA [Suspect]
     Active Substance: NUSINERSEN
     Dosage: 2ND ADMINISTRATION
     Route: 065
     Dates: start: 20210513, end: 20210513
  6. SEVORAN [Concomitant]
     Active Substance: SEVOFLURANE
     Indication: ANAESTHESIA PROCEDURE
     Dosage: 6?8 VOL% WAS USED
     Route: 055
     Dates: start: 20210429, end: 20210429
  7. SEVORAN [Concomitant]
     Active Substance: SEVOFLURANE
     Dosage: 6?8 VOL% WAS USED
     Route: 055
     Dates: start: 20210705, end: 20210705
  8. GLUCOSE 5% [Concomitant]
     Active Substance: DEXTROSE
     Route: 065
     Dates: start: 20210513, end: 20210517
  9. GLUCOSE 5% [Concomitant]
     Active Substance: DEXTROSE
     Indication: PROPHYLAXIS
     Route: 065
     Dates: start: 20210429, end: 2021
  10. SODIUM CHLORIDE 0.9% [Concomitant]
     Active Substance: SODIUM CHLORIDE
     Route: 065
     Dates: start: 20210513, end: 20210517
  11. SPINRAZA [Suspect]
     Active Substance: NUSINERSEN
     Dosage: 3RD ADMINISTRATION
     Route: 065
     Dates: start: 20210705
  12. SODIUM CHLORIDE 0.9% [Concomitant]
     Active Substance: SODIUM CHLORIDE
     Indication: PROPHYLAXIS
     Route: 065
     Dates: start: 20210429, end: 2021

REACTIONS (8)
  - Bacterial test positive [Unknown]
  - Body temperature increased [Recovered/Resolved]
  - Chills [Unknown]
  - Confusional state [Recovered/Resolved]
  - Product quality issue [Recovered/Resolved]
  - Lethargy [Recovered/Resolved]
  - Body temperature increased [Recovered/Resolved]
  - Product storage error [Unknown]

NARRATIVE: CASE EVENT DATE: 2021
